FAERS Safety Report 10178105 (Version 1)
Quarter: 2014Q2

REPORT INFORMATION
  Report Type: Spontaneous
  Country: US (occurrence: US)
  Receive Date: 20140519
  Receipt Date: 20140519
  Transmission Date: 20141212
  Serious: Yes (Other)
  Sender: FDA-Public Use
  Company Number: US-DRREDDYS-USA/USA/14/0040369

PATIENT
  Age: 64 Year
  Sex: Female

DRUGS (3)
  1. GEMCITABINE [Suspect]
     Indication: CHOLANGIOCARCINOMA
     Route: 042
  2. CISPLATIN [Suspect]
     Indication: CHOLANGIOCARCINOMA
     Route: 042
  3. OXALIPLATIN [Concomitant]
     Indication: CHOLANGIOCARCINOMA
     Route: 042

REACTIONS (2)
  - Retinopathy [Recovering/Resolving]
  - Nephropathy [Unknown]
